FAERS Safety Report 10585403 (Version 3)
Quarter: 2015Q2

REPORT INFORMATION
  Report Type: Spontaneous
  Country: US (occurrence: US)
  Receive Date: 20141114
  Receipt Date: 20150415
  Transmission Date: 20150821
  Serious: Yes (Other)
  Sender: FDA-Public Use
  Company Number: US-FRI-1000072263

PATIENT
  Age: 35 Year
  Sex: Male
  Weight: 66 kg

DRUGS (10)
  1. LEXAPRO [Suspect]
     Active Substance: ESCITALOPRAM OXALATE
     Indication: DEPRESSION
     Dosage: 5 MG
     Route: 048
     Dates: start: 20140616, end: 20140621
  2. CELEXA [Suspect]
     Active Substance: CITALOPRAM HYDROBROMIDE
     Indication: GENERALISED ANXIETY DISORDER
     Dosage: 10 MG
     Route: 048
     Dates: start: 20140527
  3. AMBIEN [Suspect]
     Active Substance: ZOLPIDEM TARTRATE
     Indication: INSOMNIA
     Dosage: 10 MG
     Route: 048
     Dates: start: 20140620, end: 20140623
  4. AMBIEN [Suspect]
     Active Substance: ZOLPIDEM TARTRATE
     Indication: DEPRESSION
  5. ZOLOFT [Suspect]
     Active Substance: SERTRALINE HYDROCHLORIDE
     Indication: INSOMNIA
     Dosage: 25 MG
     Route: 048
     Dates: start: 20140522, end: 20140527
  6. ZOLOFT [Suspect]
     Active Substance: SERTRALINE HYDROCHLORIDE
     Indication: DEPRESSION
  7. MULTIVITAMIN [Concomitant]
     Active Substance: VITAMINS
  8. CELEXA [Suspect]
     Active Substance: CITALOPRAM HYDROBROMIDE
     Indication: DEPRESSION
  9. LEXAPRO [Suspect]
     Active Substance: ESCITALOPRAM OXALATE
     Dosage: 10 MG
     Route: 048
     Dates: start: 20140621, end: 20140622
  10. ZOLOFT [Suspect]
     Active Substance: SERTRALINE HYDROCHLORIDE
     Indication: GENERALISED ANXIETY DISORDER

REACTIONS (26)
  - Apathy [Not Recovered/Not Resolved]
  - Palpitations [Unknown]
  - Depressed mood [Unknown]
  - Feelings of worthlessness [Not Recovered/Not Resolved]
  - Tremor [Unknown]
  - Crying [Unknown]
  - Vomiting [Unknown]
  - Haematemesis [Recovered/Resolved]
  - Fear [Unknown]
  - Agitation [Unknown]
  - Lethargy [Unknown]
  - Tachyphrenia [Unknown]
  - Mania [Unknown]
  - Disorientation [Unknown]
  - Paranoia [Recovering/Resolving]
  - Suicidal ideation [Not Recovered/Not Resolved]
  - Thought blocking [Unknown]
  - Anhedonia [Recovering/Resolving]
  - Unevaluable event [Not Recovered/Not Resolved]
  - Mental impairment [Not Recovered/Not Resolved]
  - Headache [Not Recovered/Not Resolved]
  - Anxiety [Unknown]
  - Feeding disorder [Not Recovered/Not Resolved]
  - Weight decreased [Recovering/Resolving]
  - Insomnia [Unknown]
  - Nausea [Unknown]

NARRATIVE: CASE EVENT DATE: 2014
